FAERS Safety Report 7206257-6 (Version None)
Quarter: 2011Q1

REPORT INFORMATION
  Report Type: 
  Country: None (occurrence: None)
  Receive Date: 20110103
  Receipt Date: 20101221
  Transmission Date: 20110831
  Serious: Yes (Other)
  Sender: FDA-Public Use
  Company Number: PHHY2010FR80353

PATIENT
  Sex: Female
  Weight: 45 kg

DRUGS (3)
  1. RADIOTHERAPY [Concomitant]
     Dosage: UNK
  2. ZOMETA [Suspect]
     Indication: BREAST CANCER
     Dosage: 4 MG, QMO
     Dates: start: 20041206, end: 20080115
  3. ARIMIDEX [Concomitant]
     Dosage: 1 DF, UNK
     Dates: start: 20041206, end: 20090901

REACTIONS (7)
  - PAIN IN JAW [None]
  - OSTEONECROSIS OF JAW [None]
  - OSTEOMYELITIS [None]
  - DEBRIDEMENT [None]
  - GINGIVAL INFECTION [None]
  - TOOTH EXTRACTION [None]
  - OSTEITIS [None]
